FAERS Safety Report 7653418-8 (Version None)
Quarter: 2011Q3

REPORT INFORMATION
  Report Type: 
  Country: None (occurrence: None)
  Receive Date: 20110803
  Receipt Date: 20110801
  Transmission Date: 20111222
  Serious: Yes (Other)
  Sender: FDA-Public Use
  Company Number: US-PFIZER INC-2011175490

PATIENT
  Sex: Female
  Weight: 143 kg

DRUGS (6)
  1. ATIVAN [Concomitant]
     Indication: ANXIETY
     Dosage: 1 MG, 2X/DAY
  2. SYNTHROID [Concomitant]
     Indication: THYROID DISORDER
     Dosage: 50 UG, DAILY
  3. LYRICA [Suspect]
     Indication: FIBROMYALGIA
     Dosage: 150 MG, DAILY
     Route: 048
     Dates: start: 20110705
  4. CLARITIN [Concomitant]
     Indication: HYPERSENSITIVITY
     Dosage: 10 MG, DAILY
  5. LEXAPRO [Concomitant]
     Indication: DEPRESSION
     Dosage: 40 MG, DAILY
  6. TOPAMAX [Concomitant]
     Indication: MOOD SWINGS
     Dosage: 100 MG, DAILY

REACTIONS (2)
  - DIPLOPIA [None]
  - MUSCULAR WEAKNESS [None]
